FAERS Safety Report 9832223 (Version 5)
Quarter: 2014Q1

REPORT INFORMATION
  Report Type: Spontaneous
  Country: TR (occurrence: TR)
  Receive Date: 20140121
  Receipt Date: 20140317
  Transmission Date: 20141002
  Serious: Yes (Hospitalization)
  Sender: FDA-Public Use
  Company Number: TR-ASTRAZENECA-2014SE02938

PATIENT
  Age: 44 Year
  Sex: Male

DRUGS (8)
  1. INFLUENZA VACCINE [Suspect]
     Route: 065
     Dates: start: 201310
  2. SYMBICORT FORTE TURBUHALER [Suspect]
     Indication: ASTHMA
     Dosage: 320 MCG/ 9 MCG BID
     Route: 055
     Dates: start: 2007, end: 20131223
  3. SYMBICORT FORTE TURBUHALER [Suspect]
     Indication: ASTHMA
     Dosage: 160 MCG/ 4.5 MCG DURING SUMMER, UNKNOWN FREQUENCY
     Route: 055
     Dates: start: 2007
  4. SYMBICORT FORTE TURBUHALER [Suspect]
     Indication: ASTHMA
     Dosage: 320 MCG/ 9 MCG BID
     Route: 055
     Dates: start: 20131229
  5. SYMBICORT FORTE TURBUHALER [Suspect]
     Indication: ASTHMA
     Dosage: UNKNOWN FREQUENCY
     Route: 055
     Dates: start: 20131231
  6. UNKNOWN [Concomitant]
     Indication: HYPERTENSION
     Dates: start: 2011
  7. AIRCOMB [Concomitant]
     Indication: ASTHMA
     Dates: start: 201401
  8. ALVESCO [Concomitant]
     Indication: ASTHMA
     Dates: end: 201402

REACTIONS (2)
  - Asthma [Recovered/Resolved]
  - Dysphonia [Recovering/Resolving]
